FAERS Safety Report 7333232-3 (Version None)
Quarter: 2011Q1

REPORT INFORMATION
  Report Type: 
  Country: None (occurrence: None)
  Receive Date: 20110304
  Receipt Date: 20110223
  Transmission Date: 20110831
  Serious: Yes (Other)
  Sender: FDA-Public Use
  Company Number: US-ASTRAZENECA-2010SE02583

PATIENT
  Age: 459 Month
  Sex: Female
  Weight: 96.6 kg

DRUGS (3)
  1. LOPRESSOR [Concomitant]
     Indication: SUPRAVENTRICULAR TACHYCARDIA
  2. TRAZODONE HCL [Concomitant]
     Indication: SLEEP DISORDER
  3. SEROQUEL XR [Suspect]
     Indication: BIPOLAR DISORDER
     Route: 048
     Dates: start: 20100101, end: 20110101

REACTIONS (11)
  - INFLUENZA LIKE ILLNESS [None]
  - NAUSEA [None]
  - VISION BLURRED [None]
  - TRANSIENT ISCHAEMIC ATTACK [None]
  - MALAISE [None]
  - HEADACHE [None]
  - MIGRAINE [None]
  - AFFECT LABILITY [None]
  - DRUG DOSE OMISSION [None]
  - INSOMNIA [None]
  - VOMITING [None]
